FAERS Safety Report 4444615-3 (Version None)
Quarter: 2004Q3

REPORT INFORMATION
  Report Type: 
  Country: None (occurrence: None)
  Receive Date: 20040902
  Receipt Date: 20040825
  Transmission Date: 20050211
  Serious: Yes (Hospitalization)
  Sender: FDA-Public Use
  Company Number: 2004225824US

PATIENT
  Age: 69 Year
  Sex: Male
  Weight: 95.2 kg

DRUGS (8)
  1. BEXTRA [Suspect]
     Indication: ARTHRITIS
     Dosage: 10 MG, QD, ORAL
     Route: 048
     Dates: start: 20040721
  2. TOPROL-XL [Concomitant]
  3. DOXYCYCLINE [Concomitant]
  4. GLUCOSAMINE [Concomitant]
  5. TYLENOL [Concomitant]
  6. VITAMIN C [Concomitant]
  7. VITAMIN E [Concomitant]
  8. TYLENOL PM [Concomitant]

REACTIONS (2)
  - THROAT IRRITATION [None]
  - VOMITING [None]
